FAERS Safety Report 21299252 (Version 1)
Quarter: 2022Q3

REPORT INFORMATION
  Report Type: Spontaneous
  Country: CN (occurrence: CN)
  Receive Date: 20220906
  Receipt Date: 20220906
  Transmission Date: 20221026
  Serious: Yes (Other)
  Sender: FDA-Public Use
  Company Number: CN-FreseniusKabi-FK202211793

PATIENT
  Age: 47 Year
  Sex: Female

DRUGS (5)
  1. EGG PHOSPHOLIPIDS\GLYCERIN\MEDIUM-CHAIN TRIGLYCERIDES\SOYBEAN OIL [Suspect]
     Active Substance: EGG PHOSPHOLIPIDS\GLYCERIN\MEDIUM-CHAIN TRIGLYCERIDES\SOYBEAN OIL
     Indication: Nutritional supplementation
     Dates: start: 20220809, end: 20220809
  2. AMINO ACIDS, SOURCE UNSPECIFIED [Suspect]
     Active Substance: AMINO ACIDS, SOURCE UNSPECIFIED
     Indication: Nutritional supplementation
     Dates: start: 20220809, end: 20220809
  3. VITAMINS [Suspect]
     Active Substance: VITAMINS
     Indication: Nutritional supplementation
     Dates: start: 20220809, end: 20220809
  4. Calcium Chloride Injection [Concomitant]
     Indication: Nutritional supplementation
     Dosage: INTRAVENOUS INJECTION
     Route: 042
     Dates: start: 20220809, end: 20220809
  5. DEXTROSE [Concomitant]
     Active Substance: DEXTROSE
     Indication: Nutritional supplementation
     Dosage: INTRAVENOUS INJECTION
     Route: 042
     Dates: start: 20220809, end: 20220809

REACTIONS (8)
  - Chest discomfort [Recovering/Resolving]
  - Tachypnoea [Recovering/Resolving]
  - Muscle spasms [Recovering/Resolving]
  - Daydreaming [Unknown]
  - Listless [Unknown]
  - Dysarthria [Unknown]
  - Mydriasis [Unknown]
  - Photophobia [Unknown]

NARRATIVE: CASE EVENT DATE: 20220809
